FAERS Safety Report 9837994 (Version 1)
Quarter: 2014Q1

REPORT INFORMATION
  Report Type: Spontaneous
  Country: US (occurrence: US)
  Receive Date: 20140123
  Receipt Date: 20140123
  Transmission Date: 20141002
  Serious: Yes (Death)
  Sender: FDA-Public Use
  Company Number: US-BAXTER-2014BAX002343

PATIENT
  Sex: Male

DRUGS (1)
  1. DIANEAL LOW CALCIUM (ULTRABAG) [Suspect]
     Indication: PERITONEAL DIALYSIS
     Route: 033
     Dates: end: 20140112

REACTIONS (5)
  - Myocardial infarction [Fatal]
  - Blood glucose increased [Fatal]
  - Renal failure [Fatal]
  - Pulmonary oedema [Fatal]
  - Myocardial oedema [Fatal]
